FAERS Safety Report 12808847 (Version 3)
Quarter: 2016Q4

REPORT INFORMATION
  Report Type: Report from Study
  Country: PT (occurrence: PT)
  Receive Date: 20161004
  Receipt Date: 20161014
  Transmission Date: 20170207
  Serious: Yes (Death, Other)
  Sender: FDA-Public Use
  Company Number: PT-BRISTOL-MYERS SQUIBB COMPANY-BMS-2016-081489

PATIENT
  Age: 69 Year
  Sex: Male

DRUGS (11)
  1. NIVOLUMAB [Suspect]
     Active Substance: NIVOLUMAB
     Indication: SQUAMOUS CELL CARCINOMA OF LUNG
     Dosage: UNK UNK, Q2WK
     Route: 065
     Dates: start: 20151209
  2. NIVOLUMAB [Suspect]
     Active Substance: NIVOLUMAB
     Dosage: UNK, Q2WK
     Route: 065
     Dates: start: 20160106
  3. NIVOLUMAB [Suspect]
     Active Substance: NIVOLUMAB
     Dosage: UNK, Q2WK
     Route: 065
     Dates: start: 20160413
  4. NIVOLUMAB [Suspect]
     Active Substance: NIVOLUMAB
     Dosage: UNK, Q2WK
     Route: 065
     Dates: start: 20160217
  5. NIVOLUMAB [Suspect]
     Active Substance: NIVOLUMAB
     Dosage: UNK, Q2WK
     Route: 065
     Dates: start: 20160316
  6. NIVOLUMAB [Suspect]
     Active Substance: NIVOLUMAB
     Dosage: UNK, Q2WK
     Route: 065
     Dates: start: 20160120
  7. NIVOLUMAB [Suspect]
     Active Substance: NIVOLUMAB
     Dosage: UNK, Q2WK
     Route: 065
     Dates: start: 20160302
  8. NIVOLUMAB [Suspect]
     Active Substance: NIVOLUMAB
     Dosage: UNK, Q2WK
     Route: 065
     Dates: start: 20160330
  9. NIVOLUMAB [Suspect]
     Active Substance: NIVOLUMAB
     Dosage: UNK, Q2WK
     Route: 065
     Dates: start: 20151223
  10. NIVOLUMAB [Suspect]
     Active Substance: NIVOLUMAB
     Dosage: UNK, Q2WK
     Route: 065
     Dates: start: 20160203
  11. NIVOLUMAB [Suspect]
     Active Substance: NIVOLUMAB
     Dosage: UNK, Q2WK
     Route: 065
     Dates: start: 20160427

REACTIONS (6)
  - Decreased appetite [Unknown]
  - Pleural effusion [Unknown]
  - Rash pruritic [Recovering/Resolving]
  - Weight decreased [Unknown]
  - Haemoptysis [Fatal]
  - Respiratory tract infection [Unknown]

NARRATIVE: CASE EVENT DATE: 20151230
